FAERS Safety Report 5198149-1 (Version None)
Quarter: 2006Q4

REPORT INFORMATION
  Report Type: 
  Country: None (occurrence: None)
  Receive Date: 20061228
  Receipt Date: 20061228
  Transmission Date: 20070319
  Serious: Yes (Other)
  Sender: FDA-Public Use
  Company Number: None

PATIENT
  Age: 25 Year
  Sex: Female
  Weight: 102.0593 kg

DRUGS (2)
  1. CHANTIX [Suspect]
     Indication: SMOKING CESSATION THERAPY
     Dates: start: 20061001, end: 20061120
  2. ORAL CONTRACEPTIVES [Concomitant]

REACTIONS (2)
  - DRUG INTERACTION [None]
  - PREGNANCY ON ORAL CONTRACEPTIVE [None]
